FAERS Safety Report 18716455 (Version 1)
Quarter: 2021Q1

REPORT INFORMATION
  Report Type: Spontaneous
  Country: JP (occurrence: JP)
  Receive Date: 20210108
  Receipt Date: 20210108
  Transmission Date: 20210419
  Serious: Yes (Hospitalization)
  Sender: FDA-Public Use
  Company Number: JP-ORION CORPORATION ORION PHARMA-ENT 2021-0003

PATIENT
  Age: 69 Year
  Sex: Male

DRUGS (4)
  1. ROTIGOTINE [Concomitant]
     Active Substance: ROTIGOTINE
     Route: 065
  2. NOURIAST [Concomitant]
     Active Substance: ISTRADEFYLLINE
     Route: 065
  3. LEVODOPA AND BENSERAZIDE HYDROCHLORIDE [Concomitant]
     Active Substance: BENSERAZIDE HYDROCHLORIDE\LEVODOPA
     Route: 065
  4. COMTAN [Suspect]
     Active Substance: ENTACAPONE
     Indication: PARKINSON^S DISEASE
     Route: 048

REACTIONS (1)
  - Intervertebral disc protrusion [Recovered/Resolved]
